FAERS Safety Report 14433349 (Version 1)
Quarter: 2018Q1

REPORT INFORMATION
  Report Type: Spontaneous
  Country: US (occurrence: US)
  Receive Date: 20180124
  Receipt Date: 20180124
  Transmission Date: 20180509
  Serious: Yes (Hospitalization)
  Sender: FDA-Public Use
  Company Number: US-PCCINC-T201700101

PATIENT

DRUGS (2)
  1. GABLOFEN [Suspect]
     Active Substance: BACLOFEN
     Indication: MUSCLE SPASTICITY
     Dosage: 184 ?G, QD
     Route: 037
     Dates: start: 20161102
  2. LIORESAL [Concomitant]
     Active Substance: BACLOFEN
     Route: 037

REACTIONS (2)
  - Deep vein thrombosis [Unknown]
  - Implant site erosion [Not Recovered/Not Resolved]

NARRATIVE: CASE EVENT DATE: 20161129
